FAERS Safety Report 8733112 (Version 4)
Quarter: 2012Q4

REPORT INFORMATION
  Report Type: 
  Country: GB (occurrence: GB)
  Receive Date: 20120820
  Receipt Date: 20120918
  Transmission Date: 20130627
  Serious: Yes (Life-Threatening, Disabling, Other)
  Sender: FDA-Public Use
  Company Number: GB-PFIZER INC-2012201841

PATIENT
  Age: 58 Year
  Sex: Male

DRUGS (2)
  1. CHAMPIX [Suspect]
     Indication: SMOKING CESSATION THERAPY
     Dosage: 1 mg, 2x/day
     Route: 048
     Dates: start: 20120709, end: 20120802
  2. ROSUVASTATIN [Concomitant]
     Dosage: UNK

REACTIONS (6)
  - Mental disorder [Recovered/Resolved with Sequelae]
  - Violence-related symptom [Unknown]
  - Confusional state [Unknown]
  - Crying [Unknown]
  - Emotional distress [Unknown]
  - Emotional disorder [Unknown]
